FAERS Safety Report 5289260-5 (Version None)
Quarter: 2007Q2

REPORT INFORMATION
  Report Type: 
  Country: None (occurrence: None)
  Receive Date: 20070403
  Receipt Date: 20070403
  Transmission Date: 20071010
  Serious: Yes (Other)
  Sender: FDA-Public Use
  Company Number: None

PATIENT
  Age: 64 Year
  Sex: Female
  Weight: 58.96 kg

DRUGS (1)
  1. VARENICLINE 0.5 MG PFIZER [Suspect]
     Indication: SMOKING CESSATION THERAPY
     Dosage: ONE TAB   DAILY   PO
     Route: 048
     Dates: start: 20070325, end: 20070327

REACTIONS (5)
  - CHEST PAIN [None]
  - HAEMOLYTIC ANAEMIA [None]
  - PLATELET COUNT DECREASED [None]
  - RENAL FAILURE ACUTE [None]
  - WHITE BLOOD CELL COUNT INCREASED [None]
